FAERS Safety Report 16884453 (Version 3)
Quarter: 2019Q4

REPORT INFORMATION
  Report Type: Spontaneous
  Country: US (occurrence: US)
  Receive Date: 20191004
  Receipt Date: 20191021
  Transmission Date: 20200122
  Serious: Yes (Other)
  Sender: FDA-Public Use
  Company Number: US-ACCORD-156495

PATIENT
  Sex: Male

DRUGS (3)
  1. FOLINIC ACID [Concomitant]
     Active Substance: LEUCOVORIN
     Indication: METASTATIC GASTRIC CANCER
  2. OXALIPLATIN. [Concomitant]
     Active Substance: OXALIPLATIN
     Indication: METASTATIC GASTRIC CANCER
  3. FLUOROURACIL. [Suspect]
     Active Substance: FLUOROURACIL
     Indication: METASTATIC GASTRIC CANCER

REACTIONS (3)
  - Catheter site induration [Unknown]
  - Infusion site extravasation [Unknown]
  - Erythema [Not Recovered/Not Resolved]
